FAERS Safety Report 22224443 (Version 5)
Quarter: 2024Q2

REPORT INFORMATION
  Report Type: Spontaneous
  Country: FR (occurrence: FR)
  Receive Date: 20230418
  Receipt Date: 20240604
  Transmission Date: 20240715
  Serious: Yes (Hospitalization, Other)
  Sender: FDA-Public Use
  Company Number: FR-ALXN-A202216268

PATIENT
  Age: 61 Year
  Sex: Female
  Weight: 75 kg

DRUGS (16)
  1. ULTOMIRIS [Suspect]
     Active Substance: RAVULIZUMAB-CWVZ
     Indication: Myasthenia gravis
     Dosage: 2700 MILLIGRAM, SINGLE
     Route: 065
     Dates: start: 20221011, end: 20221011
  2. ULTOMIRIS [Suspect]
     Active Substance: RAVULIZUMAB-CWVZ
     Dosage: 3300 MILLIGRAM, SINGLE
     Route: 065
     Dates: start: 20221025, end: 20221025
  3. ULTOMIRIS [Suspect]
     Active Substance: RAVULIZUMAB-CWVZ
     Dosage: 3300 MILLIGRAM, SINGLE
     Route: 065
     Dates: start: 20221220, end: 20221220
  4. ULTOMIRIS [Suspect]
     Active Substance: RAVULIZUMAB-CWVZ
     Dosage: 3300 MILLIGRAM, SINGLE
     Route: 065
     Dates: start: 20230517, end: 20230517
  5. ULTOMIRIS [Suspect]
     Active Substance: RAVULIZUMAB-CWVZ
     Dosage: 3300 MILLIGRAM, SINGLE
     Route: 065
     Dates: start: 20230531, end: 20230531
  6. ULTOMIRIS [Suspect]
     Active Substance: RAVULIZUMAB-CWVZ
     Dosage: 3300 MILLIGRAM, SINGLE
     Route: 065
     Dates: start: 20230614, end: 20230614
  7. ULTOMIRIS [Suspect]
     Active Substance: RAVULIZUMAB-CWVZ
     Dosage: 3300 MILLIGRAM, SINGLE
     Route: 065
     Dates: start: 20240207, end: 20240207
  8. PREDNISONE [Concomitant]
     Active Substance: PREDNISONE
     Indication: Product used for unknown indication
     Dosage: 30 MILLIGRAM, QD
     Route: 065
  9. CALCIDOSE                          /00944201/ [Concomitant]
     Indication: Product used for unknown indication
     Dosage: UNK
     Route: 065
  10. MESTINON [Concomitant]
     Active Substance: PYRIDOSTIGMINE BROMIDE
     Indication: Product used for unknown indication
     Dosage: 60 MILLIGRAM, TID
     Route: 065
  11. ALBUTEROL [Concomitant]
     Active Substance: ALBUTEROL
     Indication: Product used for unknown indication
     Dosage: UNK
     Route: 065
  12. INNOVAIR [Concomitant]
     Active Substance: BECLOMETHASONE DIPROPIONATE\FORMOTEROL
     Indication: Product used for unknown indication
     Dosage: UNK
     Route: 065
  13. ESCITALOPRAM [Concomitant]
     Active Substance: ESCITALOPRAM OXALATE
     Indication: Product used for unknown indication
     Dosage: 20 MILLIGRAM
     Route: 065
  14. LEVOTHYROXINE [Concomitant]
     Active Substance: LEVOTHYROXINE\LEVOTHYROXINE SODIUM
     Indication: Product used for unknown indication
     Dosage: 125 MICROGRAM, QD
     Route: 065
  15. PREDNISONE [Concomitant]
     Active Substance: PREDNISONE
     Indication: Product used for unknown indication
     Dosage: UNK
     Route: 065
  16. IMMUNOGLOBULIN                     /07494701/ [Concomitant]
     Indication: Myasthenia gravis
     Dosage: UNK
     Route: 065

REACTIONS (4)
  - Myasthenia gravis crisis [Recovered/Resolved]
  - Myasthenia gravis [Not Recovered/Not Resolved]
  - Drug ineffective [Unknown]
  - Infection [Unknown]

NARRATIVE: CASE EVENT DATE: 20230214
